FAERS Safety Report 9008037 (Version 3)
Quarter: 2013Q1

REPORT INFORMATION
  Report Type: Spontaneous
  Country: US (occurrence: US)
  Receive Date: 20130111
  Receipt Date: 20130312
  Transmission Date: 20140127
  Serious: No
  Sender: FDA-Public Use
  Company Number: US-PFIZER INC-2013011261

PATIENT
  Age: 87 Year
  Sex: Female
  Weight: 52.15 kg

DRUGS (2)
  1. NIFEDIPINE [Suspect]
     Indication: ARTERIAL DISORDER
     Dosage: UNK
     Route: 048
  2. MECLIZINE HYDROCHLORIDE [Concomitant]
     Indication: VERTIGO
     Dosage: 12.5 MG, AS NEEDED

REACTIONS (7)
  - Syncope [Recovered/Resolved]
  - Anxiety [Recovered/Resolved]
  - Pain in extremity [Recovered/Resolved]
  - Chest pain [Recovered/Resolved]
  - Dyspnoea [Recovered/Resolved]
  - Fatigue [Recovered/Resolved]
  - Asthenia [Recovered/Resolved]
